FAERS Safety Report 15332666 (Version 1)
Quarter: 2018Q3

REPORT INFORMATION
  Report Type: Spontaneous
  Country: US (occurrence: US)
  Receive Date: 20180830
  Receipt Date: 20180830
  Transmission Date: 20181010
  Serious: No
  Sender: FDA-Public Use
  Company Number: US-SHIRE-US201833421

PATIENT
  Sex: Female

DRUGS (1)
  1. NATPARA (PARATHYROID HORMONE) [Suspect]
     Active Substance: PARATHYROID HORMONE
     Indication: PARATHYROID DISORDER
     Dosage: 75 ?G, 1X/DAY:QD
     Route: 065
     Dates: start: 201711

REACTIONS (4)
  - Oral discomfort [Unknown]
  - Muscle spasms [Unknown]
  - Drug ineffective [Unknown]
  - Hypoaesthesia [Unknown]
